FAERS Safety Report 8188431-8 (Version None)
Quarter: 2012Q1

REPORT INFORMATION
  Report Type: 
  Country: None (occurrence: None)
  Receive Date: 20120306
  Receipt Date: 20120226
  Transmission Date: 20120608
  Serious: Yes (Hospitalization, Other)
  Sender: FDA-Public Use
  Company Number: PHHY2012MX016925

PATIENT
  Sex: Male

DRUGS (3)
  1. SERETIDE ^ALLEN + HANBURYS LTD^ [Concomitant]
  2. ONBREZ [Suspect]
     Indication: CHRONIC OBSTRUCTIVE PULMONARY DISEASE
     Dosage: 1 DF, QD
     Dates: start: 20120223, end: 20120224
  3. COMBIVENT [Concomitant]

REACTIONS (3)
  - DYSPNOEA [None]
  - HIATUS HERNIA [None]
  - CHRONIC OBSTRUCTIVE PULMONARY DISEASE [None]
